FAERS Safety Report 10362198 (Version 1)
Quarter: 2014Q1

REPORT INFORMATION
  Report Type: Report from Study
  Country: US (occurrence: None)
  Receive Date: 20140306
  Receipt Date: 20140306
  Transmission Date: 20141002
  Serious: Yes (Hospitalization)
  Sender: FDA-Public Use
  Company Number: 163-21880-13050308

PATIENT
  Age: 67 Year
  Sex: Female
  Weight: 110.9 kg

DRUGS (34)
  1. REVLIMID [Suspect]
     Indication: PLASMA CELL MYELOMA
     Dosage: 25 MG, CAPSULE , 1 IN 1 D,  PO
     Route: 048
     Dates: start: 20120621
  2. DEXAMETHASONE (DEXAMETHASONE) (UNKNOWN) [Suspect]
     Indication: PLASMA CELL MYELOMA
     Dosage: 40 MG , 1 IN 1 D, PO 06/21/2012 - UNKNOWN THERAPY DATE
     Route: 048
     Dates: start: 20120621
  3. ELOTUZUMAB (ELOTUZUMAB) (UNKNOWN) [Suspect]
     Indication: PLASMA CELL MYELOMA
     Dosage: UNK DOSE UNKNOWN - UNKNOWN THERAPY DATES
  4. ACYCLOVIR (ACICLOVIR) (ACICLOVIR) [Concomitant]
  5. ALLOPURINOL [Concomitant]
  6. CETIRIZINE [Concomitant]
  7. CHOLECALCIFEROL [Concomitant]
  8. FAMOTIDINE [Concomitant]
  9. FUROSEMIDE [Concomitant]
  10. HYDROCODONE/ACETAMINOPHEN [Concomitant]
  11. LISINPRIL [Concomitant]
  12. WARFARIN [Concomitant]
  13. ZOLIDEM [Concomitant]
  14. METOPROLOL [Concomitant]
  15. POTASSIUM CHLORIDE [Concomitant]
  16. AZITHROMYCIN [Concomitant]
  17. ZOMETA (ZOLEDRONIC ACID) [Concomitant]
  18. DOXYCYCLINE [Concomitant]
  19. INFLUENZA VACCINE [Concomitant]
  20. AMIDARONE (AMIODARONE HYDROCHLORIDE) [Concomitant]
  21. BENZONATATE [Concomitant]
  22. CEFEPIME [Concomitant]
  23. OXYGEN [Concomitant]
  24. ACETAMINOPHEN (PARACETAMOL) [Concomitant]
  25. IPRATROPIUM [Concomitant]
  26. IMMUNE GLOBULIN INFUSION (IMMUNOGLOBULIN ) [Concomitant]
  27. BENADRYL (DIPHENHYDRAMINE HYDROCHLORIDE) [Concomitant]
  28. LEVAQUIN (LEVOFLOXACIN) [Concomitant]
  29. PREDNISONE (PREDNISOLONE) [Concomitant]
  30. TYLENOL (PARACETAMOL) [Concomitant]
  31. CEFTAROLINE [Concomitant]
  32. CEFUROXIME [Concomitant]
  33. ALBUTEROL W/ IPRATROPIUM (SALBUTAMOL W/  IPRATROPIUM) [Concomitant]
  34. METHYLPREDNISOLONE [Concomitant]

REACTIONS (1)
  - Pneumonia [None]
